FAERS Safety Report 5512902-3 (Version None)
Quarter: 2007Q4

REPORT INFORMATION
  Report Type: 
  Country: None (occurrence: None)
  Receive Date: 20071112
  Receipt Date: 20071106
  Transmission Date: 20080405
  Serious: Yes (Hospitalization)
  Sender: FDA-Public Use
  Company Number: B0485301A

PATIENT
  Age: 67 Year
  Sex: Male
  Weight: 55 kg

DRUGS (6)
  1. PAXIL [Suspect]
     Indication: DEPRESSION
     Route: 048
     Dates: start: 20070803, end: 20070824
  2. PRAVASTATIN [Concomitant]
     Dosage: 10MG PER DAY
     Route: 048
  3. ADALAT [Concomitant]
     Indication: HYPERTENSION
     Dosage: 40MG PER DAY
     Route: 048
  4. HARNAL [Concomitant]
     Indication: BENIGN PROSTATIC HYPERPLASIA
     Dosage: .2MG PER DAY
     Route: 048
  5. MUCOSTA [Concomitant]
     Dosage: 300MG PER DAY
     Route: 048
  6. ASPIRIN [Concomitant]
     Indication: CEREBRAL INFARCTION
     Dosage: 100MG PER DAY
     Route: 048

REACTIONS (4)
  - ACTIVATION SYNDROME [None]
  - ANXIETY [None]
  - INSOMNIA [None]
  - IRRITABILITY [None]
